FAERS Safety Report 6186724-7 (Version None)
Quarter: 2009Q2

REPORT INFORMATION
  Report Type: 
  Country: None (occurrence: None)
  Receive Date: 20090508
  Receipt Date: 20090508
  Transmission Date: 20091009
  Serious: Yes (Life-Threatening, Disabling)
  Sender: FDA-Public Use
  Company Number: None

PATIENT
  Age: 51 Year
  Sex: Male
  Weight: 123 kg

DRUGS (18)
  1. DOFETILIDE 0.5MG [Suspect]
     Indication: ATRIAL FIBRILLATION
     Dosage: 0.5MG Q12H PO
     Route: 048
     Dates: start: 20090424, end: 20090426
  2. ASPIRIN [Concomitant]
  3. ATORVASTATIN [Concomitant]
  4. CLOPIDOGREL [Concomitant]
  5. TYLENOL [Concomitant]
  6. DIGOXIN [Concomitant]
  7. DIPHENHYDRAMINE HCL [Concomitant]
  8. FAMOTIDINE [Concomitant]
  9. FUROSEMIDE [Concomitant]
  10. ROBITUSSION WITH CODEINE [Concomitant]
  11. HEPARIN [Concomitant]
  12. WARFARIN SODIUM [Concomitant]
  13. TUSSION [Concomitant]
  14. LORAZEPAM [Concomitant]
  15. METOPROLOL [Concomitant]
  16. SPIRONOLACTONE [Concomitant]
  17. PERCOCET [Concomitant]
  18. RAMIPRIL [Concomitant]

REACTIONS (3)
  - CARDIO-RESPIRATORY ARREST [None]
  - TORSADE DE POINTES [None]
  - UNRESPONSIVE TO STIMULI [None]
